FAERS Safety Report 5843332-2 (Version None)
Quarter: 2008Q3

REPORT INFORMATION
  Report Type: 
  Country: None (occurrence: None)
  Receive Date: 20080812
  Receipt Date: 20080812
  Transmission Date: 20090109
  Serious: Yes (Other)
  Sender: FDA-Public Use
  Company Number: None

PATIENT
  Age: 27 Year
  Sex: Male
  Weight: 77.1115 kg

DRUGS (1)
  1. HALOPERIDOL [Suspect]
     Indication: AGITATION
     Dosage: 5 MG EVERY 4 HOURS PRN PO
     Route: 048
     Dates: start: 20080625, end: 20080627

REACTIONS (3)
  - MUSCLE RIGIDITY [None]
  - NUCHAL RIGIDITY [None]
  - TRISMUS [None]
